FAERS Safety Report 23945353 (Version 7)
Quarter: 2025Q3

REPORT INFORMATION
  Report Type: Report from Study
  Country: US (occurrence: US)
  Receive Date: 20240606
  Receipt Date: 20250715
  Transmission Date: 20251021
  Serious: Yes (Hospitalization, Other)
  Sender: SANOFI AVENTIS
  Company Number: US-SA-2024SA162592

PATIENT
  Age: 56 Year
  Sex: Male
  Weight: 181.7 kg

DRUGS (44)
  1. CABAZITAXEL [Suspect]
     Active Substance: CABAZITAXEL
     Indication: Adenocarcinoma
     Dosage: 30 MG/M2, Q3W
     Route: 042
     Dates: start: 20240328, end: 20240328
  2. CABAZITAXEL [Suspect]
     Active Substance: CABAZITAXEL
     Dosage: 20 MG/M2, Q3W
     Route: 042
     Dates: start: 20240417, end: 20240417
  3. CLOTRIMAZOLE [Concomitant]
     Active Substance: CLOTRIMAZOLE
  4. DIPHENHYDRAMINE HYDROCHLORIDE [Concomitant]
     Active Substance: DIPHENHYDRAMINE HYDROCHLORIDE
  5. ENOXAPARIN [Concomitant]
     Active Substance: ENOXAPARIN
  6. NYSTATIN [Concomitant]
     Active Substance: NYSTATIN
  7. SODIUM PHOSPHATE [Concomitant]
     Active Substance: SODIUM PHOSPHATE
  8. POLYETHYLENE GLYCOL [Concomitant]
     Active Substance: POLYETHYLENE GLYCOL
  9. TRIMETHOPRIM [Concomitant]
     Active Substance: TRIMETHOPRIM
  10. WHOLE BLOOD [Concomitant]
     Active Substance: WHOLE BLOOD
  11. HYDROCORTISONE [Concomitant]
     Active Substance: HYDROCORTISONE
  12. APIXABAN [Concomitant]
     Active Substance: APIXABAN
  13. VITAMINS [Concomitant]
     Active Substance: VITAMINS
  14. HYDROMORPHONE HCL [Concomitant]
     Active Substance: HYDROMORPHONE HYDROCHLORIDE
  15. ACETAMINOPHEN [Concomitant]
     Active Substance: ACETAMINOPHEN
  16. BISACODYL [Concomitant]
     Active Substance: BISACODYL
  17. VANCOMYCIN [Concomitant]
     Active Substance: VANCOMYCIN
  18. ONDANSETRON [Concomitant]
     Active Substance: ONDANSETRON
     Dates: start: 20230306
  19. PROTONIX [Concomitant]
     Active Substance: PANTOPRAZOLE SODIUM
  20. CEFEPIME [Concomitant]
     Active Substance: CEFEPIME HYDROCHLORIDE
  21. SENNA [Concomitant]
     Active Substance: SENNOSIDES
  22. KETOROLAC [Concomitant]
     Active Substance: KETOROLAC TROMETHAMINE
  23. SODIUM ZIRCONIUM CYCLOSILICATE [Concomitant]
     Active Substance: SODIUM ZIRCONIUM CYCLOSILICATE
  24. PENTAMIDINE ISETHIONATE [Concomitant]
     Active Substance: PENTAMIDINE ISETHIONATE
  25. LACTATED RINGERS SOLUTION [Concomitant]
     Active Substance: CALCIUM CHLORIDE\POTASSIUM CHLORIDE\SODIUM CHLORIDE\SODIUM LACTATE
  26. IBUPROFEN [Concomitant]
     Active Substance: IBUPROFEN
  27. METHYLPREDNISOLONE SODIUM SUCCINATE [Concomitant]
     Active Substance: METHYLPREDNISOLONE SODIUM SUCCINATE
  28. CHOLECALCIFEROL [Concomitant]
     Active Substance: CHOLECALCIFEROL
  29. ALBUMIN (HUMAN) [Concomitant]
     Active Substance: ALBUMIN HUMAN
  30. MELATONIN [Concomitant]
     Active Substance: MELATONIN
  31. SULFAMETHOXAZOLE [Concomitant]
     Active Substance: SULFAMETHOXAZOLE
  32. TRIAMCINOLONE [Concomitant]
     Active Substance: TRIAMCINOLONE
  33. GABAPENTIN [Concomitant]
     Active Substance: GABAPENTIN
  34. PHYTONADIONE [Concomitant]
     Active Substance: PHYTONADIONE
  35. INSULIN LISPRO [Concomitant]
     Active Substance: INSULIN LISPRO
  36. HEPARIN [Concomitant]
     Active Substance: HEPARIN SODIUM
  37. Blood platelets [Concomitant]
  38. PREDNISONE [Concomitant]
     Active Substance: PREDNISONE
  39. OXYCODONE [Concomitant]
     Active Substance: OXYCODONE
     Dates: start: 20230505
  40. METRONIDAZOLE [Concomitant]
     Active Substance: METRONIDAZOLE
  41. POTASSIUM PHOSPHATE, MONOBASIC [Concomitant]
     Active Substance: POTASSIUM PHOSPHATE, MONOBASIC
  42. VITAMIN B COMPLEX [Concomitant]
     Active Substance: CYANOCOBALAMIN\DEXPANTHENOL\NIACINAMIDE\PYRIDOXINE HYDROCHLORIDE\RIBOFLAVIN 5^-PHOSPHATE SODIUM\THIA
  43. MAGNESIUM HYDROXIDE [Concomitant]
     Active Substance: MAGNESIUM HYDROXIDE
  44. PIPERACILLIN SODIUM\TAZOBACTAM SODIUM [Concomitant]
     Active Substance: PIPERACILLIN SODIUM\TAZOBACTAM SODIUM

REACTIONS (3)
  - Lymphocyte count decreased [Recovered/Resolved]
  - Alanine aminotransferase increased [Recovered/Resolved]
  - Hyponatraemia [Recovered/Resolved]

NARRATIVE: CASE EVENT DATE: 20240507
